FAERS Safety Report 5294376-3 (Version None)
Quarter: 2007Q2

REPORT INFORMATION
  Report Type: 
  Country: None (occurrence: None)
  Receive Date: 20070409
  Receipt Date: 20070409
  Transmission Date: 20071010
  Serious: Yes (Hospitalization)
  Sender: FDA-Public Use
  Company Number: None

PATIENT
  Sex: Male

DRUGS (21)
  1. CAMPATH [Suspect]
     Indication: MYCOSIS FUNGOIDES
     Dosage: 30MG
     Dates: start: 20070228, end: 20070316
  2. LIDA MANTEL CREAM [Concomitant]
  3. PRAMOSONE [Concomitant]
  4. COMBIVENT [Concomitant]
  5. ALLOPURINOL [Concomitant]
  6. CALCIUM ACETATE [Concomitant]
  7. EUCERIN [Concomitant]
  8. EMOLLIENTS [Concomitant]
  9. NEXIUM [Concomitant]
  10. FLUCONAZOLE [Concomitant]
  11. GANCICLOVIR [Concomitant]
  12. HYDROCORTISONE [Concomitant]
  13. PIPERACILLIN AND TAZOBACTAM [Concomitant]
  14. BACTRIM [Concomitant]
  15. TYLENOL [Concomitant]
  16. ALLATOIN [Concomitant]
  17. GLUCOSE [Concomitant]
  18. HEPARIN [Concomitant]
  19. LOPERAMIDE HCL [Concomitant]
  20. LACRI-LUBE [Concomitant]
  21. ONDANSETRON [Concomitant]

REACTIONS (14)
  - ABDOMINAL PAIN [None]
  - ACUTE RESPIRATORY FAILURE [None]
  - ASPIRATION [None]
  - BLOOD BICARBONATE DECREASED [None]
  - DIARRHOEA [None]
  - HYPOVOLAEMIA [None]
  - MENTAL STATUS CHANGES [None]
  - NO THERAPEUTIC RESPONSE [None]
  - PNEUMONIA CYTOMEGALOVIRAL [None]
  - PNEUMONIA STAPHYLOCOCCAL [None]
  - PNEUMONITIS [None]
  - RENAL FAILURE ACUTE [None]
  - SEPSIS [None]
  - TACHYPNOEA [None]
